FAERS Safety Report 13538875 (Version 1)
Quarter: 2017Q2

REPORT INFORMATION
  Report Type: Spontaneous
  Country: US (occurrence: US)
  Receive Date: 20170511
  Receipt Date: 20170511
  Transmission Date: 20170830
  Serious: Yes (Hospitalization)
  Sender: FDA-Public Use
  Company Number: None

PATIENT
  Age: 52 Year
  Sex: Female

DRUGS (10)
  1. AZATHIOPRINE. [Concomitant]
     Active Substance: AZATHIOPRINE
  2. PEPCID [Concomitant]
     Active Substance: FAMOTIDINE
  3. CLONIDINE. [Concomitant]
     Active Substance: CLONIDINE
  4. MYCOPHENOLATE 500MG TAB [Suspect]
     Active Substance: MYCOPHENOLIC ACID
     Indication: HYPERLIPIDAEMIA
     Route: 048
     Dates: start: 2000
  5. MULTIVITAMIN [Concomitant]
     Active Substance: VITAMINS
  6. FERROUS SULF [Concomitant]
  7. LOSARTAN. [Concomitant]
     Active Substance: LOSARTAN
  8. METOPROLOL TARTRATE. [Concomitant]
     Active Substance: METOPROLOL TARTRATE
  9. ATORVASTATIN [Concomitant]
     Active Substance: ATORVASTATIN
  10. TACROLIMUS 0.5MG CAP [Suspect]
     Active Substance: TACROLIMUS
     Indication: HYPERLIPIDAEMIA
     Route: 048
     Dates: start: 2000

REACTIONS (1)
  - Renal impairment [None]

NARRATIVE: CASE EVENT DATE: 201703
